FAERS Safety Report 4550248-0 (Version None)
Quarter: 2005Q1

REPORT INFORMATION
  Report Type: 
  Country: None (occurrence: None)
  Receive Date: 20050111
  Receipt Date: 20050111
  Transmission Date: 20050727
  Serious: No
  Sender: FDA-Public Use
  Company Number: None

PATIENT
  Age: 77 Year
  Sex: Male
  Weight: 99.7913 kg

DRUGS (1)
  1. CRESTOR [Suspect]
     Dosage: 2.5 MGS-ORALLY ONCE DAILY
     Route: 048
     Dates: start: 20041001, end: 20041201

REACTIONS (1)
  - ABDOMINAL PAIN [None]
